FAERS Safety Report 9230263 (Version 1)
Quarter: 2013Q2

REPORT INFORMATION
  Report Type: Report from Study
  Country: IE (occurrence: IE)
  Receive Date: 20130415
  Receipt Date: 20130415
  Transmission Date: 20140414
  Serious: Yes (Other)
  Sender: FDA-Public Use
  Company Number: IE-ASTELLAS-2013EU002689

PATIENT
  Age: 65 Year
  Sex: Male

DRUGS (2)
  1. ENZALUTAMIDE [Suspect]
     Indication: PROSTATE CANCER
     Dosage: 160 MG, UNKNOWN/D
     Route: 048
     Dates: start: 20130218, end: 20130306
  2. ENZALUTAMIDE [Suspect]
     Dosage: 80 MG, UNKNOWN/D
     Route: 048
     Dates: start: 20130314

REACTIONS (5)
  - Liver function test abnormal [Recovering/Resolving]
  - Tinnitus [Recovered/Resolved]
  - Fatigue [Recovered/Resolved]
  - Chills [Recovering/Resolving]
  - Back pain [Recovering/Resolving]
